FAERS Safety Report 8814453 (Version 1)
Quarter: 2012Q4

REPORT INFORMATION
  Report Type: 
  Country: US (occurrence: US)
  Receive Date: 20120928
  Receipt Date: 20120928
  Transmission Date: 20130627
  Serious: Yes (Other)
  Sender: FDA-Public Use
  Company Number: US-PFIZER INC-2012236658

PATIENT
  Age: 68 Year
  Sex: Male
  Weight: 96.83 kg

DRUGS (1)
  1. TOVIAZ [Suspect]
     Indication: HYPERTONIC BLADDER
     Dosage: 8 mg, 1x/day
     Route: 048
     Dates: start: 2009

REACTIONS (1)
  - Coronary artery disease [Unknown]
